FAERS Safety Report 6438757-0 (Version None)
Quarter: 2009Q4

REPORT INFORMATION
  Report Type: 
  Country: None (occurrence: None)
  Receive Date: 20091113
  Receipt Date: 20091102
  Transmission Date: 20100525
  Serious: Yes (Other)
  Sender: FDA-Public Use
  Company Number: IE-JNJFOC-20091101260

PATIENT
  Sex: Female
  Weight: 99 kg

DRUGS (4)
  1. REMICADE [Suspect]
     Route: 042
     Dates: start: 20090421, end: 20091102
  2. REMICADE [Suspect]
     Indication: RHEUMATOID ARTHRITIS
     Route: 042
     Dates: start: 20090421, end: 20091102
  3. TELMISARTAN [Concomitant]
  4. ESOMEPRAZOLE MAGNESIUM [Concomitant]

REACTIONS (5)
  - CHEST DISCOMFORT [None]
  - FEELING HOT [None]
  - INFUSION RELATED REACTION [None]
  - MALAISE [None]
  - URTICARIA [None]
